FAERS Safety Report 8925304 (Version 1)
Quarter: 2012Q4

REPORT INFORMATION
  Report Type: 
  Country: FR (occurrence: FR)
  Receive Date: 20121126
  Receipt Date: 20121126
  Transmission Date: 20130627
  Serious: Yes (Hospitalization)
  Sender: FDA-Public Use
  Company Number: FR-PFIZER INC-2012290448

PATIENT
  Age: 79 Year
  Sex: Female
  Weight: 43 kg

DRUGS (12)
  1. SOLU-MEDROL [Suspect]
     Dosage: 250 mg, one single intake
     Route: 040
     Dates: start: 2011, end: 2011
  2. KINERET [Suspect]
     Dosage: 100 mg, 1x/day
     Route: 058
     Dates: start: 201112, end: 20120406
  3. KINERET [Suspect]
     Dosage: 100 mg, 1x/day
     Route: 058
     Dates: start: 2012, end: 20120919
  4. CORTANCYL [Suspect]
     Dosage: 10 mg, 1x/day
     Route: 048
     Dates: start: 2006
  5. CORTANCYL [Suspect]
     Dosage: 8 mg, 1x/day
     Route: 048
     Dates: start: 200702
  6. CORTANCYL [Suspect]
     Dosage: 12 mg, 1x/day
     Route: 048
     Dates: start: 2007
  7. CORTANCYL [Suspect]
     Dosage: 13 mg, 1x/day
     Route: 048
     Dates: start: 200709
  8. CORTANCYL [Suspect]
     Dosage: 5 mg, 1x/day
     Route: 048
     Dates: start: 2011, end: 201112
  9. CORTANCYL [Suspect]
     Dosage: 10 mg per day
     Route: 048
     Dates: start: 2012
  10. ROACTEMRA [Suspect]
     Dosage: 480 mg, monthly
     Route: 042
     Dates: start: 201003, end: 201005
  11. AERIUS [Concomitant]
     Dosage: 1 DF, 1x/day
  12. DAFALGAN [Concomitant]
     Indication: PAIN
     Dosage: UNK

REACTIONS (3)
  - Pulmonary tuberculosis [Recovering/Resolving]
  - Lymph node tuberculosis [Recovering/Resolving]
  - Lymphopenia [Not Recovered/Not Resolved]
